FAERS Safety Report 23326207 (Version 1)
Quarter: 2023Q4

REPORT INFORMATION
  Report Type: Spontaneous
  Country: RU (occurrence: RU)
  Receive Date: 20231221
  Receipt Date: 20231221
  Transmission Date: 20240110
  Serious: Yes (Hospitalization, Disabling, Other)
  Sender: FDA-Public Use
  Company Number: RU-IPSEN Group, Research and Development-2023-25216

PATIENT
  Age: 54 Year
  Sex: Male

DRUGS (1)
  1. CABOMETYX [Suspect]
     Active Substance: CABOZANTINIB S-MALATE
     Indication: Metastatic renal cell carcinoma
     Dosage: 60 MG, QD
     Route: 065
     Dates: start: 20230110, end: 202311

REACTIONS (13)
  - Muscular weakness [Unknown]
  - Loss of consciousness [Unknown]
  - Intracranial aneurysm [Unknown]
  - Asthenia [Unknown]
  - Weight decreased [Unknown]
  - Seizure [Unknown]
  - Hypoaesthesia [Recovered/Resolved]
  - Asthenia [Unknown]
  - Decreased appetite [Unknown]
  - Weight decreased [Unknown]
  - Diarrhoea [Unknown]
  - Rash [Unknown]
  - Palmar-plantar erythrodysaesthesia syndrome [Unknown]

NARRATIVE: CASE EVENT DATE: 20230301
